FAERS Safety Report 11776462 (Version 2)
Quarter: 2015Q4

REPORT INFORMATION
  Report Type: Spontaneous
  Country: US (occurrence: US)
  Receive Date: 20151125
  Receipt Date: 20151126
  Transmission Date: 20160304
  Serious: Yes (Hospitalization)
  Sender: FDA-Public Use
  Company Number: US-ROCHE-1667029

PATIENT
  Age: 86 Year
  Sex: Male

DRUGS (1)
  1. ROCEPHIN [Suspect]
     Active Substance: CEFTRIAXONE SODIUM
     Indication: BACTERIAL TEST POSITIVE
     Route: 065

REACTIONS (3)
  - Chills [Unknown]
  - Vomiting [Unknown]
  - Asthenia [Unknown]
